FAERS Safety Report 9432392 (Version 2)
Quarter: 2013Q3

REPORT INFORMATION
  Report Type: Spontaneous
  Country: US (occurrence: US)
  Receive Date: 20130731
  Receipt Date: 20130808
  Transmission Date: 20140515
  Serious: Yes (Hospitalization, Other)
  Sender: FDA-Public Use
  Company Number: US-PFIZER INC-2013221603

PATIENT
  Age: 50 Year
  Sex: Male

DRUGS (3)
  1. AMLODIPINE BESILATE [Suspect]
     Dosage: 500 MG, SINGLE
     Route: 048
  2. HYDROCHLOROTHIAZIDE [Suspect]
     Dosage: 625 MG, SINGLE
     Route: 048
  3. LISINOPRIL [Suspect]
     Dosage: 1000 MG, SINGLE
     Route: 048

REACTIONS (11)
  - Overdose [Unknown]
  - Suicide attempt [Unknown]
  - Shock [Not Recovered/Not Resolved]
  - Respiratory failure [Unknown]
  - Renal failure [Unknown]
  - Haemodynamic instability [Recovered/Resolved]
  - Hypotension [Unknown]
  - Hypokalaemia [Unknown]
  - Hypophosphataemia [Unknown]
  - Depressed level of consciousness [Unknown]
  - Tachycardia [Unknown]
